FAERS Safety Report 7315638-1 (Version None)
Quarter: 2011Q1

REPORT INFORMATION
  Report Type: 
  Country: None (occurrence: None)
  Receive Date: 20110225
  Receipt Date: 20110214
  Transmission Date: 20110831
  Serious: Yes (Other)
  Sender: FDA-Public Use
  Company Number: PHHY2011CA12213

PATIENT
  Sex: Male

DRUGS (6)
  1. VIAGRA [Concomitant]
     Dosage: 100 MG, UNK
  2. SIMVASTATIN [Concomitant]
     Dosage: 20 MG, UNK
  3. ASPIRIN [Concomitant]
     Dosage: 81 MG, UNK
  4. PAXIL [Concomitant]
     Dosage: 20 MG, UNK
  5. METFORMIN SANDOZ [Suspect]
     Dosage: 850 MG, TID
     Dates: end: 20110214
  6. AVAPRO [Concomitant]
     Dosage: 300 MG, UNK

REACTIONS (4)
  - EYELID PTOSIS [None]
  - HYPOAESTHESIA ORAL [None]
  - HYPOAESTHESIA [None]
  - SWELLING FACE [None]
